FAERS Safety Report 25539106 (Version 2)
Quarter: 2025Q3

REPORT INFORMATION
  Report Type: Report from Study
  Country: EG (occurrence: EG)
  Receive Date: 20250710
  Receipt Date: 20250716
  Transmission Date: 20251020
  Serious: Yes (Disabling)
  Sender: ROCHE
  Company Number: EG-ROCHE-10000325867

PATIENT
  Age: 35 Year
  Sex: Female
  Weight: 65 kg

DRUGS (8)
  1. OCREVUS [Suspect]
     Active Substance: OCRELIZUMAB
     Indication: Multiple sclerosis
     Route: 042
     Dates: start: 20240206
  2. OCREVUS [Suspect]
     Active Substance: OCRELIZUMAB
     Route: 042
     Dates: start: 20220202
  3. CAL MAG [Concomitant]
  4. VIDROP [Concomitant]
  5. GAPTIN [Concomitant]
  6. METHYLCOBALAMIN [Concomitant]
     Active Substance: METHYLCOBALAMIN
  7. .ALPHA.-LIPOIC ACID [Concomitant]
     Active Substance: .ALPHA.-LIPOIC ACID
  8. BETAHISTINE [Concomitant]
     Active Substance: BETAHISTINE

REACTIONS (6)
  - Drug ineffective [Unknown]
  - Gait disturbance [Not Recovered/Not Resolved]
  - Multiple sclerosis [Not Recovered/Not Resolved]
  - Limb discomfort [Recovering/Resolving]
  - Hypoaesthesia [Recovering/Resolving]
  - Muscular weakness [Recovering/Resolving]
